FAERS Safety Report 7080493-4 (Version None)
Quarter: 2010Q4

REPORT INFORMATION
  Report Type: 
  Country: None (occurrence: None)
  Receive Date: 20101025
  Receipt Date: 20101009
  Transmission Date: 20110411
  Serious: Yes (Other)
  Sender: FDA-Public Use
  Company Number: ACO_02670_2010

PATIENT
  Sex: Female

DRUGS (2)
  1. AMPYRA [Suspect]
     Indication: MULTIPLE SCLEROSIS
     Dosage: (10 MG BID, EVERY 12 HOURS ORAL)
     Route: 048
     Dates: start: 20100701, end: 20100901
  2. COPAXONE [Concomitant]

REACTIONS (2)
  - CONDITION AGGRAVATED [None]
  - NEURALGIA [None]
